FAERS Safety Report 4431056-8 (Version None)
Quarter: 2004Q3

REPORT INFORMATION
  Report Type: 
  Country: None (occurrence: None)
  Receive Date: 20040824
  Receipt Date: 20040608
  Transmission Date: 20050211
  Serious: Yes (Death, Hospitalization, Other)
  Sender: FDA-Public Use
  Company Number: 200414370US

PATIENT
  Sex: Female

DRUGS (11)
  1. ARAVA [Suspect]
     Dates: start: 19990601, end: 20030226
  2. ENBREL [Suspect]
     Indication: RHEUMATOID ARTHRITIS
     Dates: start: 20011026, end: 20030226
  3. PREDNISONE [Concomitant]
     Dates: start: 19990101
  4. ALENDRONATE SODIUM [Concomitant]
     Dates: start: 20000101
  5. LANSOPRAZOLE [Concomitant]
     Dosage: DOSE: UNK
     Dates: start: 19990101
  6. ATORVASTATIN [Concomitant]
     Dosage: DOSE: UNK
     Dates: start: 19990101
  7. DEXTROPROPOXYPHENE HCL W/ACETAMINOPHEN [Concomitant]
     Dosage: DOSE: UNK
     Dates: start: 19990101
  8. IBUPROFEN [Concomitant]
     Dosage: DOSE: UNK
     Dates: start: 19990101
  9. CETIRIZINE HCL [Concomitant]
     Dosage: DOSE: UNK
     Dates: start: 19990101
  10. METHOTREXATE [Concomitant]
     Dosage: DOSE: UNK
  11. CYCLOSPORINE [Concomitant]
     Dosage: DOSE: UNK

REACTIONS (16)
  - ANGIOGRAM PERIPHERAL ABNORMAL [None]
  - ARTERIAL OCCLUSIVE DISEASE [None]
  - ATHEROSCLEROSIS [None]
  - DEEP VEIN THROMBOSIS [None]
  - FINGER AMPUTATION [None]
  - GANGRENE [None]
  - ISCHAEMIA [None]
  - LEG AMPUTATION [None]
  - LOCALISED INFECTION [None]
  - NECROSIS [None]
  - PERIPHERAL VASCULAR DISORDER [None]
  - PNEUMOCYSTIS CARINII PNEUMONIA [None]
  - POST PROCEDURAL COMPLICATION [None]
  - PULMONARY EMBOLISM [None]
  - VASCULAR STENOSIS [None]
  - VASCULITIS [None]
